FAERS Safety Report 6158016-3 (Version None)
Quarter: 2009Q2

REPORT INFORMATION
  Report Type: 
  Country: None (occurrence: None)
  Receive Date: 20090417
  Receipt Date: 20090401
  Transmission Date: 20091009
  Serious: Yes (Other)
  Sender: FDA-Public Use
  Company Number: JP-PFIZER INC-2009185502

PATIENT

DRUGS (3)
  1. BANAN [Suspect]
     Dosage: UNK
     Route: 048
     Dates: start: 20071201, end: 20071201
  2. OLMETEC [Suspect]
     Dosage: UNK
     Route: 048
     Dates: start: 20071101, end: 20071201
  3. LOXONIN [Suspect]
     Dosage: UNK
     Dates: start: 20071201, end: 20071201

REACTIONS (2)
  - RENAL FAILURE ACUTE [None]
  - TOXIC EPIDERMAL NECROLYSIS [None]
